FAERS Safety Report 7586211-5 (Version None)
Quarter: 2011Q2

REPORT INFORMATION
  Report Type: 
  Country: None (occurrence: None)
  Receive Date: 20110630
  Receipt Date: 20110630
  Transmission Date: 20111010
  Serious: Yes (Life-Threatening)
  Sender: FDA-Public Use
  Company Number: None

PATIENT
  Age: 75 Year
  Sex: Female
  Weight: 52.7 kg

DRUGS (1)
  1. ALENDRONATE SODIUM [Suspect]
     Indication: OSTEOPOROSIS
     Dosage: ONE TABLET ONCE WEEKLY MOUTH
     Route: 048
     Dates: start: 20110101, end: 20110601

REACTIONS (9)
  - CHOKING SENSATION [None]
  - CHEMICAL BURN OF RESPIRATORY TRACT [None]
  - INSOMNIA [None]
  - FOREIGN BODY [None]
  - OROPHARYNGEAL PAIN [None]
  - SENSATION OF FOREIGN BODY [None]
  - CHEMICAL BURN OF GASTROINTESTINAL TRACT [None]
  - DYSPNOEA [None]
  - SPEECH DISORDER [None]
